FAERS Safety Report 7889886-6 (Version None)
Quarter: 2011Q4

REPORT INFORMATION
  Report Type: 
  Country: None (occurrence: None)
  Receive Date: 20111103
  Receipt Date: 20111025
  Transmission Date: 20120403
  Serious: Yes (Other)
  Sender: FDA-Public Use
  Company Number: JP-GLAXOSMITHKLINE-B0758903A

PATIENT
  Age: 42 Year
  Sex: Male

DRUGS (5)
  1. PAXIL [Suspect]
     Indication: DEPRESSION
     Dosage: 40MG PER DAY
     Route: 048
  2. ALPRAZOLAM [Concomitant]
     Dosage: 2.4MG PER DAY
     Route: 048
  3. LITHIUM CARBONATE [Concomitant]
     Dosage: 800MG PER DAY
     Route: 048
  4. PAXIL [Suspect]
     Dosage: 10MG PER DAY
     Route: 048
  5. MIRADOL [Concomitant]
     Dosage: 300MG PER DAY
     Route: 048

REACTIONS (5)
  - IMPULSIVE BEHAVIOUR [None]
  - AGGRESSION [None]
  - IRRITABILITY [None]
  - AGITATION [None]
  - DRUG WITHDRAWAL SYNDROME [None]
